FAERS Safety Report 8214276-6 (Version None)
Quarter: 2012Q1

REPORT INFORMATION
  Report Type: 
  Country: None (occurrence: None)
  Receive Date: 20120316
  Receipt Date: 20120307
  Transmission Date: 20120608
  Serious: Yes (Hospitalization)
  Sender: FDA-Public Use
  Company Number: US-BAYER-2012-023578

PATIENT
  Age: 54 Year
  Sex: Female
  Weight: 58.957 kg

DRUGS (5)
  1. DROSPIRENONE AND ETHINYL ESTRADIOL [Suspect]
     Dosage: UNK
  2. ALCAIN [Concomitant]
     Dosage: UNK
     Route: 047
     Dates: start: 20110222
  3. VICODIN [Concomitant]
     Dosage: UNK
     Dates: start: 20110222
  4. YASMIN [Suspect]
     Dosage: UNK
  5. YAZ [Suspect]
     Dosage: UNK

REACTIONS (2)
  - DEEP VEIN THROMBOSIS [None]
  - PELVIC VENOUS THROMBOSIS [None]
